FAERS Safety Report 13354384 (Version 2)
Quarter: 2017Q2

REPORT INFORMATION
  Report Type: Spontaneous
  Country: US (occurrence: US)
  Receive Date: 20170321
  Receipt Date: 20170410
  Transmission Date: 20170830
  Serious: Yes (Other)
  Sender: FDA-Public Use
  Company Number: US-ELI_LILLY_AND_COMPANY-US201703006210

PATIENT
  Sex: Female

DRUGS (2)
  1. ACYCLOVIR                          /00587301/ [Concomitant]
     Active Substance: ACYCLOVIR
     Indication: HERPES ZOSTER
  2. FORTEO [Suspect]
     Active Substance: TERIPARATIDE
     Indication: OSTEOPOROSIS
     Dosage: 20 UG, UNKNOWN
     Route: 058
     Dates: start: 20161128, end: 20170320

REACTIONS (10)
  - Urine calcium increased [Recovered/Resolved]
  - Tremor [Unknown]
  - Muscular weakness [Unknown]
  - Blood calcium increased [Recovered/Resolved]
  - Calcinosis [Not Recovered/Not Resolved]
  - Urinary sediment present [Recovered/Resolved]
  - Urinary casts [Recovered/Resolved]
  - Tachycardia [Recovered/Resolved]
  - Heart rate increased [Recovered/Resolved]
  - Fatigue [Not Recovered/Not Resolved]

NARRATIVE: CASE EVENT DATE: 201702
